FAERS Safety Report 10082290 (Version 2)
Quarter: 2014Q2

REPORT INFORMATION
  Report Type: Spontaneous
  Country: US (occurrence: US)
  Receive Date: 20140416
  Receipt Date: 20140416
  Transmission Date: 20141212
  Serious: Yes (Hospitalization)
  Sender: FDA-Public Use
  Company Number: 2014SP000987

PATIENT
  Age: 61 Year
  Sex: Male

DRUGS (6)
  1. LATUDA [Suspect]
     Route: 048
     Dates: start: 20140402, end: 20140403
  2. LATUDA [Suspect]
     Route: 048
     Dates: start: 20140331
  3. LATUDA [Suspect]
     Route: 048
     Dates: start: 20140314, end: 20140331
  4. PREVACID [Concomitant]
     Dates: start: 2004
  5. PROZAC [Concomitant]
  6. BUSPAR [Concomitant]

REACTIONS (18)
  - General physical health deterioration [Not Recovered/Not Resolved]
  - Gastric disorder [Not Recovered/Not Resolved]
  - Malnutrition [Not Recovered/Not Resolved]
  - Diarrhoea [Not Recovered/Not Resolved]
  - Abdominal pain [Not Recovered/Not Resolved]
  - Illogical thinking [Not Recovered/Not Resolved]
  - Weight decreased [Not Recovered/Not Resolved]
  - Dizziness postural [Not Recovered/Not Resolved]
  - Photophobia [Not Recovered/Not Resolved]
  - Hyperacusis [Not Recovered/Not Resolved]
  - Asthenia [Not Recovered/Not Resolved]
  - Social avoidant behaviour [Not Recovered/Not Resolved]
  - Hypoaesthesia oral [Not Recovered/Not Resolved]
  - Restlessness [Not Recovered/Not Resolved]
  - Tremor [Not Recovered/Not Resolved]
  - Insomnia [Not Recovered/Not Resolved]
  - Decreased appetite [Not Recovered/Not Resolved]
  - Nightmare [Recovered/Resolved]
